FAERS Safety Report 6266483-X (Version None)
Quarter: 2009Q3

REPORT INFORMATION
  Report Type: 
  Country: None (occurrence: None)
  Receive Date: 20090713
  Receipt Date: 20090702
  Transmission Date: 20100115
  Serious: Yes (Death, Hospitalization, Other)
  Sender: FDA-Public Use
  Company Number: IN-BAXTER-2009BH010835

PATIENT
  Age: 38 Year
  Sex: Female

DRUGS (1)
  1. DIANEAL [Suspect]
     Indication: PERITONEAL DIALYSIS
     Route: 033
     Dates: start: 20090620, end: 20090702

REACTIONS (3)
  - PERITONEAL DIALYSIS COMPLICATION [None]
  - PERITONITIS [None]
  - SEPSIS [None]
